FAERS Safety Report 8099048-8 (Version None)
Quarter: 2012Q1

REPORT INFORMATION
  Report Type: 
  Country: None (occurrence: None)
  Receive Date: 20120131
  Receipt Date: 20120124
  Transmission Date: 20120608
  Serious: Yes (Death, Other)
  Sender: FDA-Public Use
  Company Number: GB-ABBOTT-11P-167-0855265-00

PATIENT
  Sex: Male

DRUGS (1)
  1. HUMIRA [Suspect]
     Indication: RHEUMATOID ARTHRITIS
     Route: 058
     Dates: start: 20050624, end: 20110201

REACTIONS (9)
  - LABORATORY TEST ABNORMAL [None]
  - CARDIAC ARREST [None]
  - CARDIAC FAILURE [None]
  - MYOCARDIAL INFARCTION [None]
  - MYOCARDIAL ISCHAEMIA [None]
  - INTERSTITIAL LUNG DISEASE [None]
  - TROPONIN INCREASED [None]
  - AORTIC VALVE STENOSIS [None]
  - SUDDEN DEATH [None]
